FAERS Safety Report 17194579 (Version 1)
Quarter: 2019Q4

REPORT INFORMATION
  Report Type: Spontaneous
  Country: DE (occurrence: DE)
  Receive Date: 20191224
  Receipt Date: 20191224
  Transmission Date: 20200122
  Serious: Yes (Hospitalization, Other)
  Sender: FDA-Public Use
  Company Number: DE-TEVA-2019-DE-1156835

PATIENT
  Age: 67 Year
  Sex: Male

DRUGS (3)
  1. CARBOPLATIN. [Suspect]
     Active Substance: CARBOPLATIN
     Indication: NON-SMALL CELL LUNG CANCER
     Dosage: 500 MILLIGRAM / SQ. METER, AUC 5
     Dates: start: 201809, end: 201905
  2. PEMBROLIZUMAB. [Suspect]
     Active Substance: PEMBROLIZUMAB
     Indication: NON-SMALL CELL LUNG CANCER
     Dosage: 200 MILLIGRAM
     Dates: start: 201809, end: 201905
  3. CORTISONE [Concomitant]
     Active Substance: CORTISONE

REACTIONS (3)
  - Polyneuropathy [Recovered/Resolved]
  - Colitis [Recovered/Resolved]
  - Fatigue [Recovered/Resolved]
